FAERS Safety Report 14291765 (Version 1)
Quarter: 2017Q4

REPORT INFORMATION
  Report Type: Spontaneous
  Country: US (occurrence: US)
  Receive Date: 20171215
  Receipt Date: 20171215
  Transmission Date: 20180321
  Serious: No
  Sender: FDA-Public Use
  Company Number: US-NOVOPROD-551552

PATIENT
  Age: 71 Year
  Sex: Female

DRUGS (5)
  1. LEVEMIR [Suspect]
     Active Substance: INSULIN DETEMIR
     Indication: TYPE 2 DIABETES MELLITUS
     Dosage: 15 U, UNK
     Route: 058
     Dates: start: 2017
  2. TRULICITY [Suspect]
     Active Substance: DULAGLUTIDE
     Indication: TYPE 2 DIABETES MELLITUS
     Dosage: UNK
     Route: 058
  3. AZOPT [Concomitant]
     Active Substance: BRINZOLAMIDE
     Indication: GLAUCOMA
     Dosage: UNK
  4. DORZOLAMIDE W/TIMOLOL [Concomitant]
     Active Substance: DORZOLAMIDE HYDROCHLORIDE\TIMOLOL MALEATE
     Indication: GLAUCOMA
     Dosage: UNK
  5. LUMIGAN [Concomitant]
     Active Substance: BIMATOPROST
     Indication: GLAUCOMA
     Dosage: UNK

REACTIONS (4)
  - Asthenia [Not Recovered/Not Resolved]
  - Feeling abnormal [Not Recovered/Not Resolved]
  - Hypotension [Not Recovered/Not Resolved]
  - Grip strength decreased [Not Recovered/Not Resolved]

NARRATIVE: CASE EVENT DATE: 2017
